FAERS Safety Report 20796563 (Version 1)
Quarter: 2022Q2

REPORT INFORMATION
  Report Type: Report from Study
  Country: CO (occurrence: None)
  Receive Date: 20220506
  Receipt Date: 20220506
  Transmission Date: 20220721
  Serious: Yes (Hospitalization)
  Sender: FDA-Public Use
  Company Number: 2022A171156

PATIENT
  Age: 28239 Day
  Sex: Male
  Weight: 62 kg

DRUGS (1)
  1. BRILINTA [Suspect]
     Active Substance: TICAGRELOR
     Indication: Thrombosis
     Route: 048
     Dates: start: 20200217

REACTIONS (1)
  - Peripheral vein occlusion [Not Recovered/Not Resolved]

NARRATIVE: CASE EVENT DATE: 20220412
